FAERS Safety Report 10033428 (Version 1)
Quarter: 2014Q1

REPORT INFORMATION
  Report Type: Spontaneous
  Country: BE (occurrence: BE)
  Receive Date: 20140325
  Receipt Date: 20140325
  Transmission Date: 20141002
  Serious: Yes (Other)
  Sender: FDA-Public Use
  Company Number: BE-AMGEN-BELSP2014020130

PATIENT
  Age: 78 Year
  Sex: Female

DRUGS (3)
  1. NEULASTA [Suspect]
     Indication: PRODUCT USED FOR UNKNOWN INDICATION
     Dosage: UNK
     Route: 065
  2. CISPLATIN [Concomitant]
     Indication: LUNG NEOPLASM
     Dosage: UNK
  3. NAVELBINE [Concomitant]
     Indication: LUNG NEOPLASM
     Dosage: UNK

REACTIONS (2)
  - Confusional state [Recovered/Resolved]
  - Leukocytosis [Recovered/Resolved]
